FAERS Safety Report 5623539-X (Version None)
Quarter: 2008Q1

REPORT INFORMATION
  Report Type: 
  Country: None (occurrence: None)
  Receive Date: 20080212
  Receipt Date: 20080207
  Transmission Date: 20080703
  Serious: Yes (Other)
  Sender: FDA-Public Use
  Company Number: MX-ALLERGAN-0711707US

PATIENT
  Sex: Female

DRUGS (2)
  1. BOTOX [Suspect]
     Indication: HYPERHIDROSIS
     Dosage: 400 UNITS, SINGLE
     Route: 023
  2. BOTOX [Suspect]
     Dosage: 200 UNITS, SINGLE
     Route: 023

REACTIONS (2)
  - BOTULISM [None]
  - MUSCULAR WEAKNESS [None]
